FAERS Safety Report 19694065 (Version 1)
Quarter: 2021Q3

REPORT INFORMATION
  Report Type: Spontaneous
  Country: IT (occurrence: IT)
  Receive Date: 20210812
  Receipt Date: 20210812
  Transmission Date: 20211014
  Serious: Yes (Other)
  Sender: FDA-Public Use
  Company Number: IT-MYLANLABS-2021M1049575

PATIENT
  Age: 25 Year
  Sex: Male

DRUGS (4)
  1. ESCITALOPRAM [Suspect]
     Active Substance: ESCITALOPRAM OXALATE
     Indication: NERVOUSNESS
     Dosage: 140 MILLIGRAM, TOTAL
     Route: 048
     Dates: start: 20201202, end: 20201202
  2. DELORAZEPAM [Suspect]
     Active Substance: DELORAZEPAM
     Indication: NERVOUSNESS
     Dosage: 15 MILLIGRAM, TOTAL
     Route: 048
     Dates: start: 20201202, end: 20201202
  3. ESCITALOPRAM [Suspect]
     Active Substance: ESCITALOPRAM OXALATE
     Indication: INSOMNIA
  4. DELORAZEPAM [Suspect]
     Active Substance: DELORAZEPAM
     Indication: INSOMNIA

REACTIONS (4)
  - Somnolence [Recovering/Resolving]
  - Bradykinesia [Recovering/Resolving]
  - Bradyphrenia [Recovering/Resolving]
  - Drug abuse [Recovering/Resolving]

NARRATIVE: CASE EVENT DATE: 20201202
